FAERS Safety Report 5293919-3 (Version None)
Quarter: 2007Q2

REPORT INFORMATION
  Report Type: 
  Country: None (occurrence: None)
  Receive Date: 20070405
  Receipt Date: 20070320
  Transmission Date: 20071010
  Serious: Yes (Hospitalization)
  Sender: FDA-Public Use
  Company Number: 2006PV021711

PATIENT
  Age: 49 Year
  Sex: Female
  Weight: 94.8018 kg

DRUGS (9)
  1. BYETTA [Suspect]
     Indication: DIABETES MELLITUS NON-INSULIN-DEPENDENT
     Dosage: 5 MCG;BID; SC, 5 MCG; BID; SC
     Route: 058
     Dates: start: 20060701, end: 20060701
  2. BYETTA [Suspect]
     Indication: DIABETES MELLITUS NON-INSULIN-DEPENDENT
     Dosage: 5 MCG;BID; SC, 5 MCG; BID; SC
     Route: 058
     Dates: start: 20061002
  3. PREDNISONE TAB [Concomitant]
  4. MS CONTIN [Concomitant]
  5. SERAX [Concomitant]
  6. ZANAFLEX [Concomitant]
  7. LANTUS [Concomitant]
  8. LOTREL [Concomitant]
  9. DOXYCYCLINE [Concomitant]

REACTIONS (5)
  - BLOOD GLUCOSE DECREASED [None]
  - BLOOD PRESSURE FLUCTUATION [None]
  - PAIN [None]
  - PNEUMONIA [None]
  - SEPSIS [None]
